FAERS Safety Report 18049264 (Version 1)
Quarter: 2020Q3

REPORT INFORMATION
  Report Type: Report from Study
  Country: JP (occurrence: JP)
  Receive Date: 20200721
  Receipt Date: 20200721
  Transmission Date: 20201103
  Serious: Yes (Death, Hospitalization)
  Sender: FDA-Public Use
  Company Number: JP-MYLANLABS-2020M1065135

PATIENT
  Age: 62 Year
  Sex: Female

DRUGS (8)
  1. FLUDARABINE [Suspect]
     Active Substance: FLUDARABINE PHOSPHATE
     Indication: CHRONIC MYELOMONOCYTIC LEUKAEMIA
     Route: 065
  2. IMIPENEM AND CILASTATIN [Suspect]
     Active Substance: CILASTATIN SODIUM\IMIPENEM
     Indication: MYCOBACTERIUM ABSCESSUS INFECTION
     Route: 065
  3. MINOCYCLINE [Suspect]
     Active Substance: MINOCYCLINE HYDROCHLORIDE
     Indication: MYCOBACTERIUM ABSCESSUS INFECTION
     Route: 065
  4. BUSULFAN. [Suspect]
     Active Substance: BUSULFAN
     Indication: CHRONIC MYELOMONOCYTIC LEUKAEMIA
     Route: 065
  5. AMIKACIN. [Suspect]
     Active Substance: AMIKACIN
     Indication: MYCOBACTERIUM ABSCESSUS INFECTION
     Route: 065
  6. PREDNISOLONE. [Suspect]
     Active Substance: PREDNISOLONE
     Indication: IDIOPATHIC PNEUMONIA SYNDROME
     Dosage: 2 MILLIGRAM/KILOGRAM, QD
     Route: 065
  7. PREDNISOLONE. [Suspect]
     Active Substance: PREDNISOLONE
     Dosage: 0.5 MILLIGRAM/KILOGRAM, QD
     Route: 065
  8. CLARITHROMYCIN. [Suspect]
     Active Substance: CLARITHROMYCIN
     Indication: MYCOBACTERIUM ABSCESSUS INFECTION
     Dosage: UNK
     Route: 065

REACTIONS (5)
  - Lung abscess [Fatal]
  - Mycobacterium abscessus infection [Recovering/Resolving]
  - Multiple-drug resistance [Unknown]
  - Staphylococcal abscess [Fatal]
  - Bacteraemia [Recovering/Resolving]
